FAERS Safety Report 19286967 (Version 2)
Quarter: 2021Q3

REPORT INFORMATION
  Report Type: Other
  Country: IT (occurrence: IT)
  Receive Date: 20210521
  Receipt Date: 20210715
  Transmission Date: 20211014
  Serious: Yes (Other)
  Sender: FDA-Public Use
  Company Number: IT-ROCHE-2505468

PATIENT
  Age: 33 Year
  Sex: Male

DRUGS (2)
  1. BENDAMUSTINE [Concomitant]
     Active Substance: BENDAMUSTINE
  2. OBINUTUZUMAB. [Suspect]
     Active Substance: OBINUTUZUMAB
     Indication: FOLLICULAR LYMPHOMA
     Dosage: ON DAY 1, 8, 15 OF CYCLE 1 AN DAY 1 OF CYCLES 2?6 OR 2?8?ON 12/DEC/2019, HE RECEIVED THERAPY WITH IN
     Route: 042
     Dates: start: 20190729

REACTIONS (4)
  - Folate deficiency [Not Recovered/Not Resolved]
  - Neutropenia [Recovered/Resolved]
  - Neutropenia [Recovered/Resolved]
  - Off label use [Unknown]

NARRATIVE: CASE EVENT DATE: 20191203
